FAERS Safety Report 7329895 (Version 3)
Quarter: 2019Q4

REPORT INFORMATION
  Report Type: Spontaneous
  Country: IT (occurrence: IT)
  Receive Date: 20100324
  Receipt Date: 20191023
  Transmission Date: 20200122
  Serious: Yes (Hospitalization, Other)
  Sender: FDA-Public Use
  Company Number: PHHY2010IT15180

PATIENT
  Age: 56 Year
  Sex: Female

DRUGS (4)
  1. ZOLEDRONATE [Suspect]
     Active Substance: ZOLEDRONIC ACID
     Indication: PRODUCT USED FOR UNKNOWN INDICATION
     Dosage: 4 MG, QMO
     Route: 041
     Dates: end: 200604
  2. PREDNISONE. [Concomitant]
     Active Substance: PREDNISONE
     Indication: PRODUCT USED FOR UNKNOWN INDICATION
     Dosage: 60 MG, QD
     Route: 065
  3. PREDNISONE. [Concomitant]
     Active Substance: PREDNISONE
     Dosage: 6 MG, QD
     Route: 065
  4. PAMIDRONATE DISODIUM. [Suspect]
     Active Substance: PAMIDRONATE DISODIUM
     Indication: OSTEOPOROSIS
     Dosage: 90 MG, QMO
     Route: 041

REACTIONS (9)
  - Impaired healing [Unknown]
  - Secondary adrenocortical insufficiency [Unknown]
  - Osteonecrosis of jaw [Unknown]
  - Femur fracture [Not Recovered/Not Resolved]
  - Fracture nonunion [Unknown]
  - Arthralgia [Unknown]
  - Multiple fractures [Unknown]
  - Callus formation delayed [Unknown]
  - Blood creatinine increased [Unknown]

NARRATIVE: CASE EVENT DATE: 200704
